FAERS Safety Report 9417708 (Version 1)
Quarter: 2013Q3

REPORT INFORMATION
  Report Type: Report from Study
  Country: CA (occurrence: CA)
  Receive Date: 20130724
  Receipt Date: 20130724
  Transmission Date: 20140515
  Serious: Yes (Other)
  Sender: FDA-Public Use
  Company Number: CA-JNJFOC-20130711937

PATIENT
  Age: 38 Year
  Sex: Female
  Weight: 133 kg

DRUGS (10)
  1. REMICADE [Suspect]
     Indication: COLITIS ULCERATIVE
     Route: 042
     Dates: start: 20130521
  2. REMICADE [Suspect]
     Indication: COLITIS ULCERATIVE
     Route: 042
     Dates: start: 20111219
  3. REMICADE [Suspect]
     Indication: COLITIS ULCERATIVE
     Route: 042
     Dates: start: 20130716
  4. AZATHIOPRINE [Concomitant]
     Route: 048
  5. INSULIN [Concomitant]
     Indication: TYPE 1 DIABETES MELLITUS
     Route: 065
  6. WARFARIN [Concomitant]
     Indication: DEEP VEIN THROMBOSIS
     Route: 065
  7. SOLU CORTEF [Concomitant]
     Indication: PREMEDICATION
     Route: 042
     Dates: start: 20130521
  8. SOLU CORTEF [Concomitant]
     Indication: PREMEDICATION
     Route: 042
     Dates: start: 20111219
  9. SOLU CORTEF [Concomitant]
     Indication: PREMEDICATION
     Route: 042
     Dates: start: 20130716
  10. EFFEXOR [Concomitant]
     Route: 065

REACTIONS (2)
  - Depression [Recovering/Resolving]
  - Thyroid function test abnormal [Not Recovered/Not Resolved]
